FAERS Safety Report 9459006 (Version 2)
Quarter: 2013Q3

REPORT INFORMATION
  Report Type: Spontaneous
  Country: DK (occurrence: JP)
  Receive Date: 20130814
  Receipt Date: 20130917
  Transmission Date: 20140515
  Serious: Yes (Hospitalization)
  Sender: FDA-Public Use
  Company Number: JP-FRI-1000047740

PATIENT
  Age: 55 Year
  Sex: Male

DRUGS (5)
  1. LEXAPRO [Suspect]
     Indication: DEPRESSION
     Dosage: 10 MG
     Route: 048
     Dates: start: 20111114, end: 20111117
  2. RIVOTRIL [Concomitant]
     Indication: DEPRESSION
     Dosage: 1 MG
     Route: 048
     Dates: start: 20110624
  3. DEPAS [Concomitant]
     Indication: DEPRESSION
     Dosage: 0.5 MG
     Route: 048
     Dates: start: 20110624
  4. RESLIN [Concomitant]
     Indication: DEPRESSION
     Dosage: 25 MG
     Route: 048
     Dates: start: 20111108
  5. YOKUKANSANKACHIMPIHANGE [Concomitant]
     Indication: DEPRESSION
     Dosage: 7.5 GRAM
     Route: 048
     Dates: start: 20111108

REACTIONS (4)
  - Suicide attempt [Unknown]
  - Activation syndrome [Unknown]
  - Anxiety [Not Recovered/Not Resolved]
  - Malaise [Not Recovered/Not Resolved]
